FAERS Safety Report 13891752 (Version 1)
Quarter: 2017Q3

REPORT INFORMATION
  Report Type: Other
  Country: IT (occurrence: IT)
  Receive Date: 20170822
  Receipt Date: 20170822
  Transmission Date: 20171127
  Serious: Yes (Other)
  Sender: FDA-Public Use
  Company Number: IT-APOTEX-2017AP016801

PATIENT
  Age: 43 Year
  Sex: Male

DRUGS (1)
  1. CLARITROMICINA DOC GENERICI [Suspect]
     Active Substance: CLARITHROMYCIN
     Indication: PHARYNGITIS
     Dosage: UNK
     Route: 048
     Dates: start: 20161020, end: 20161023

REACTIONS (1)
  - Penile oedema [Recovering/Resolving]

NARRATIVE: CASE EVENT DATE: 20161022
